FAERS Safety Report 9898093 (Version 2)
Quarter: 2014Q1

REPORT INFORMATION
  Report Type: Report from Study
  Country: US (occurrence: US)
  Receive Date: 20140214
  Receipt Date: 20140214
  Transmission Date: 20141002
  Serious: Yes (Death, Life-Threatening, Hospitalization)
  Sender: FDA-Public Use
  Company Number: US-SA-2013SA132956

PATIENT
  Age: 65 Year
  Sex: Male
  Weight: 75.6 kg

DRUGS (28)
  1. CLOFARABINE [Suspect]
     Indication: ACUTE MYELOID LEUKAEMIA
     Route: 042
     Dates: start: 20131210, end: 20131214
  2. BUSULFAN [Suspect]
     Indication: ACUTE MYELOID LEUKAEMIA
     Route: 042
     Dates: start: 20131211, end: 20131213
  3. BUSULFAN [Suspect]
     Indication: ACUTE MYELOID LEUKAEMIA
     Route: 042
     Dates: start: 20131214, end: 20131214
  4. ACYCLOVIR [Concomitant]
     Route: 042
  5. CHOLECALCIFEROL [Concomitant]
     Dosage: DOSE:1000 UNIT(S)
     Route: 048
  6. HALOPERIDOL [Concomitant]
     Dosage: STRENGTH: 5 MG/ML
     Route: 042
  7. LEVOFLOXACIN [Concomitant]
     Route: 065
  8. MINOCYCLINE [Concomitant]
     Dosage: STRENGTH: 12.5 MG/30 ML; DOSE: SWISH AND SPIT
     Route: 065
  9. ONDANSETRON [Concomitant]
     Route: 042
  10. PANTOPRAZOLE [Concomitant]
     Route: 042
  11. POSACONAZOLE [Concomitant]
     Dosage: FORM: SUSPENSION
     Route: 048
  12. TAMSULOSIN [Concomitant]
     Route: 048
  13. URSODIOL [Concomitant]
     Dosage: STRENGTH:600 MG/24 ML SUSPENSION
     Route: 048
  14. MULTIVITAMINS WITH MINERALS [Concomitant]
     Route: 048
  15. SOLUTIONS FOR PARENTERAL NUTRITION [Concomitant]
     Route: 042
  16. ACETAMINOPHEN [Concomitant]
     Route: 048
  17. DIPHENHYDRAMINE [Concomitant]
     Route: 042
  18. DOCUSATE [Concomitant]
     Dosage: FREQUENCY: PRN
     Route: 048
  19. LANOLIN [Concomitant]
     Dosage: FREQUENCY: PRN
     Route: 061
  20. LORAZEPAM [Concomitant]
     Dosage: FREQUENCY: PRN; DOSE: 0.5 - 1 MG
     Route: 048
  21. LORAZEPAM [Concomitant]
     Dosage: FREQUENCY: PRN; DOSE: 0.25-0.5 MG
     Route: 042
  22. PROCHLORPERAZINE [Concomitant]
     Dosage: FREQUENCY: PRN
     Route: 048
  23. PROCHLORPERAZINE [Concomitant]
     Dosage: FREQUENCY: PRN
     Route: 042
  24. SENNA [Concomitant]
     Dosage: FREQUENCY: PRN
     Route: 048
  25. SODIUM CHLORIDE [Concomitant]
     Dosage: STRENGTH: 0.9% INJ 5 ML FLUSH SYRINGE
     Route: 042
  26. COMPAZINE [Concomitant]
     Route: 065
  27. DAPTOMYCIN [Concomitant]
     Dosage: FREQUENCY: Q48 HOURS
     Route: 042
  28. MEROPENEM [Concomitant]

REACTIONS (4)
  - Multi-organ failure [Fatal]
  - Sepsis [Fatal]
  - Gastrointestinal haemorrhage [Unknown]
  - Respiratory distress [Not Recovered/Not Resolved]
